FAERS Safety Report 23513167 (Version 1)
Quarter: 2024Q1

REPORT INFORMATION
  Report Type: Spontaneous
  Country: US (occurrence: None)
  Receive Date: 20240212
  Receipt Date: 20240212
  Transmission Date: 20240409
  Serious: No
  Sender: FDA-Public Use
  Company Number: 2024A024472

PATIENT
  Age: 14157 Day

DRUGS (1)
  1. TEZSPIRE [Suspect]
     Active Substance: TEZEPELUMAB-EKKO
     Indication: Asthma
     Route: 058
     Dates: start: 20240130

REACTIONS (7)
  - Cough [Unknown]
  - Headache [Unknown]
  - Respiratory tract congestion [Unknown]
  - Illness [Unknown]
  - Insurance issue [Unknown]
  - Injection site pain [Unknown]
  - Device leakage [Unknown]

NARRATIVE: CASE EVENT DATE: 20240127
